FAERS Safety Report 8649315 (Version 3)
Quarter: 2014Q2

REPORT INFORMATION
  Report Type: Report from Study
  Country: JP (occurrence: JP)
  Receive Date: 20120705
  Receipt Date: 20140509
  Transmission Date: 20141212
  Serious: No
  Sender: FDA-Public Use
  Company Number: JP-US-EMD SERONO, INC.-7144062

PATIENT
  Sex: Female
  Weight: 48 kg

DRUGS (10)
  1. GONAL-F RFF PEN [Suspect]
     Indication: OVULATION INDUCTION
     Route: 058
     Dates: start: 20110729, end: 20110806
  2. GONAL-F RFF PEN [Suspect]
     Route: 058
     Dates: start: 20110829, end: 20110909
  3. GONAL-F RFF PEN [Suspect]
     Route: 058
     Dates: start: 20110910, end: 20110913
  4. GONAL-F RFF PEN [Suspect]
     Route: 058
     Dates: start: 20110920, end: 20110922
  5. HCG [Concomitant]
     Indication: OVULATION INDUCTION
     Route: 030
     Dates: start: 20110807, end: 20110807
  6. HCG [Concomitant]
     Route: 030
     Dates: start: 20110923, end: 20110923
  7. DUPHASTON [Concomitant]
     Indication: PRODUCT USED FOR UNKNOWN INDICATION
     Route: 048
     Dates: start: 20110810, end: 20110823
  8. DUPHASTON [Concomitant]
     Route: 048
     Dates: start: 20110925, end: 20111008
  9. VECTAN [Concomitant]
     Indication: PRODUCT USED FOR UNKNOWN INDICATION
     Route: 048
     Dates: start: 20110810, end: 20110823
  10. VECTAN [Concomitant]
     Route: 048
     Dates: start: 20110925, end: 20111008

REACTIONS (1)
  - Abortion [Recovered/Resolved]
